FAERS Safety Report 8080415-3 (Version None)
Quarter: 2012Q1

REPORT INFORMATION
  Report Type: 
  Country: None (occurrence: None)
  Receive Date: 20120130
  Receipt Date: 20120117
  Transmission Date: 20120608
  Serious: Yes (Other)
  Sender: FDA-Public Use
  Company Number: AT-ASTELLAS-2012US000914

PATIENT
  Sex: Female

DRUGS (1)
  1. TARCEVA [Suspect]
     Indication: LUNG CANCER METASTATIC
     Dosage: UNK
     Route: 048

REACTIONS (14)
  - PARONYCHIA [None]
  - PRURITUS [None]
  - POLYNEUROPATHY [None]
  - TOOTH LOSS [None]
  - INFECTION [None]
  - HYPERHIDROSIS [None]
  - SKIN HAEMORRHAGE [None]
  - OSTEONECROSIS [None]
  - PETECHIAE [None]
  - BLOOD BLISTER [None]
  - MOUTH ULCERATION [None]
  - ONYCHOMADESIS [None]
  - PHOTOSENSITIVITY REACTION [None]
  - RASH [None]
